FAERS Safety Report 14361032 (Version 1)
Quarter: 2018Q1

REPORT INFORMATION
  Report Type: Spontaneous
  Country: US (occurrence: US)
  Receive Date: 20180104
  Receipt Date: 20180104
  Transmission Date: 20180509
  Serious: Yes (Hospitalization)
  Sender: FDA-Public Use
  Company Number: None

PATIENT
  Age: 60 Year
  Sex: Male
  Weight: 110.22 kg

DRUGS (1)
  1. ATORVASTATIN [Suspect]
     Active Substance: ATORVASTATIN
     Indication: HYPERLIPIDAEMIA
     Route: 048
     Dates: start: 20130626, end: 20171107

REACTIONS (16)
  - Fall [None]
  - Asthenia [None]
  - Acute kidney injury [None]
  - Blood thyroid stimulating hormone increased [None]
  - Pain [None]
  - Disease recurrence [None]
  - Rhabdomyolysis [None]
  - C-reactive protein increased [None]
  - Red blood cell sedimentation rate increased [None]
  - Myalgia [None]
  - Hyponatraemia [None]
  - Injury [None]
  - Fibromyalgia [None]
  - Myopathy [None]
  - Hypokalaemia [None]
  - Hypothyroidism [None]

NARRATIVE: CASE EVENT DATE: 20171107
